FAERS Safety Report 23951826 (Version 2)
Quarter: 2025Q2

REPORT INFORMATION
  Report Type: Spontaneous
  Country: SI (occurrence: SI)
  Receive Date: 20240607
  Receipt Date: 20250516
  Transmission Date: 20250717
  Serious: Yes (Death)
  Sender: LA JOLLA PHARMACEUTICAL
  Company Number: SI-LA JOLLA PHARMA, LLC-2024-INNO-SI000036

PATIENT

DRUGS (4)
  1. GIAPREZA [Suspect]
     Active Substance: ANGIOTENSIN II
     Indication: Distributive shock
     Route: 042
  2. NOREPINEPHRINE [Concomitant]
     Active Substance: NOREPINEPHRINE
     Indication: Product used for unknown indication
  3. VASOPRESSIN [Concomitant]
     Active Substance: VASOPRESSIN
     Indication: Product used for unknown indication
  4. METHYLPREDNISOLONE [Concomitant]
     Active Substance: METHYLPREDNISOLONE
     Indication: Product used for unknown indication

REACTIONS (1)
  - Distributive shock [Fatal]
